FAERS Safety Report 6546373-5 (Version None)
Quarter: 2010Q1

REPORT INFORMATION
  Report Type: 
  Country: None (occurrence: None)
  Receive Date: 20100119
  Receipt Date: 20100104
  Transmission Date: 20100710
  Serious: Yes (Death)
  Sender: FDA-Public Use
  Company Number: 2010AC000012

PATIENT
  Age: 60 Year
  Sex: Male
  Weight: 90.7194 kg

DRUGS (13)
  1. DIGOXIN [Suspect]
  2. CARVEDILOL [Concomitant]
  3. SERTRALINE HCL [Concomitant]
  4. METOLAZONE [Concomitant]
  5. GUAIFENSEN [Concomitant]
  6. POTASSIUM CHLORIDE [Concomitant]
  7. LISINOPRIL [Concomitant]
  8. FUROSEMIDE [Concomitant]
  9. CLOPIDOGREL BISULFATE [Concomitant]
  10. SIMVASTATIN [Concomitant]
  11. COUMADIN [Concomitant]
  12. WARFARIN SODIUM [Concomitant]
  13. OMEPRAZOLE [Concomitant]

REACTIONS (12)
  - ASTHENIA [None]
  - BRADYCARDIA [None]
  - CARDIOMYOPATHY [None]
  - DYSPNOEA [None]
  - ECONOMIC PROBLEM [None]
  - HYPOKALAEMIA [None]
  - HYPONATRAEMIA [None]
  - HYPOTENSION [None]
  - MULTIPLE INJURIES [None]
  - SICK SINUS SYNDROME [None]
  - UNEVALUABLE EVENT [None]
  - VENTRICULAR TACHYCARDIA [None]
